FAERS Safety Report 12098476 (Version 5)
Quarter: 2016Q3

REPORT INFORMATION
  Report Type: Report from Study
  Country: KR (occurrence: KR)
  Receive Date: 20160222
  Receipt Date: 20160713
  Transmission Date: 20161109
  Serious: Yes (Hospitalization, Other)
  Sender: FDA-Public Use
  Company Number: KR-ALEXION PHARMACEUTICALS INC.-A201601098

PATIENT
  Age: 72 Year
  Sex: Male
  Weight: 58.5 kg

DRUGS (18)
  1. RABIET [Concomitant]
     Indication: PROPHYLAXIS AGAINST GASTROINTESTINAL ULCER
     Dosage: 10 MG, UNK
     Route: 048
     Dates: start: 20151012
  2. NEUROMED                           /00943401/ [Concomitant]
     Indication: CEREBRAL INFARCTION
     Dosage: 1600 MG, UNK
     Route: 048
     Dates: start: 20150908
  3. CALCORT [Concomitant]
     Active Substance: DEFLAZACORT
     Indication: PAROXYSMAL NOCTURNAL HAEMOGLOBINURIA
     Dosage: 9 MG, UNK
     Route: 048
     Dates: start: 20130121, end: 20160229
  4. SOLIRIS [Suspect]
     Active Substance: ECULIZUMAB
     Dosage: 900 MG, Q2W
     Route: 042
     Dates: start: 20160205
  5. FOLSAN [Concomitant]
     Active Substance: FOLIC ACID
     Indication: ANAEMIA
     Dosage: 4 MG, UNK
     Route: 048
     Dates: start: 20130107
  6. LEGALON [Concomitant]
     Active Substance: MILK THISTLE
     Indication: HEPATIC FUNCTION ABNORMAL
     Dosage: 420 MG, UNK
     Route: 048
     Dates: start: 20150507, end: 20160229
  7. ULTRACET [Concomitant]
     Active Substance: ACETAMINOPHEN\TRAMADOL HYDROCHLORIDE
     Indication: ARTHRALGIA
     Dosage: 1450 MG, UNK
     Route: 048
     Dates: start: 20160205
  8. CORTISOLU [Concomitant]
     Active Substance: HYDROCORTISONE SODIUM SUCCINATE
     Indication: PROPHYLAXIS
     Dosage: 50 MG, UNK
     Route: 042
     Dates: start: 20160205, end: 20160205
  9. MUCOSTA [Concomitant]
     Active Substance: REBAMIPIDE
     Indication: PROPHYLAXIS AGAINST GASTROINTESTINAL ULCER
     Dosage: 200 MG, UNK
     Route: 048
     Dates: start: 20130108
  10. ASPIRIN PROTECT [Concomitant]
     Active Substance: ASPIRIN
     Indication: CEREBRAL INFARCTION
     Dosage: 100 MG, UNK
     Route: 048
     Dates: start: 20151030, end: 20160229
  11. CILOSTAN [Concomitant]
     Indication: CEREBRAL INFARCTION
     Dosage: 200 MG, UNK
     Route: 048
     Dates: start: 20151030, end: 20160229
  12. CRAVIT [Concomitant]
     Active Substance: LEVOFLOXACIN
     Indication: INFECTION PROPHYLAXIS
     Dosage: 500 MG, UNK
     Route: 048
     Dates: start: 20160419, end: 20160424
  13. CRAVIT [Concomitant]
     Active Substance: LEVOFLOXACIN
     Dosage: 500 MG, QD
     Route: 065
     Dates: start: 20160627, end: 20160703
  14. EXJADE [Concomitant]
     Active Substance: DEFERASIROX
     Indication: HAEMOSIDEROSIS
     Dosage: 250 MG, UNK
     Route: 048
     Dates: start: 20150930
  15. SOLIRIS [Suspect]
     Active Substance: ECULIZUMAB
     Indication: PAROXYSMAL NOCTURNAL HAEMOGLOBINURIA
     Dosage: 600 MG, QW
     Route: 042
     Dates: start: 20160108, end: 20160129
  16. URSA [Concomitant]
     Indication: HEPATIC FUNCTION ABNORMAL
     Dosage: 300 MG, UNK
     Route: 048
     Dates: start: 20151211, end: 20160229
  17. PHENIRAMIN [Concomitant]
     Indication: PROPHYLAXIS
     Dosage: 4 MG, UNK
     Route: 042
     Dates: start: 20160205, end: 20160205
  18. GODEX [Concomitant]
     Indication: ARTHRALGIA
     Dosage: 1450 MG, UNK
     Route: 048
     Dates: start: 20160205

REACTIONS (5)
  - Enterocolitis [Recovering/Resolving]
  - Gastrointestinal haemorrhage [Recovered/Resolved]
  - Pneumonia [Recovered/Resolved]
  - C-reactive protein increased [Unknown]
  - C-reactive protein increased [Recovered/Resolved]

NARRATIVE: CASE EVENT DATE: 20160208
